FAERS Safety Report 9699434 (Version 2)
Quarter: 2013Q4

REPORT INFORMATION
  Report Type: Spontaneous
  Country: US (occurrence: US)
  Receive Date: 20131120
  Receipt Date: 20131125
  Transmission Date: 20140711
  Serious: Yes (Other)
  Sender: FDA-Public Use
  Company Number: US-TEVA-368861USA

PATIENT
  Age: 26 Year
  Sex: Female
  Weight: 71.28 kg

DRUGS (1)
  1. PARAGARD 380A [Suspect]
     Indication: CONTRACEPTION
     Route: 015
     Dates: start: 2010

REACTIONS (2)
  - Uterine perforation [Not Recovered/Not Resolved]
  - Medical device complication [Not Recovered/Not Resolved]
